FAERS Safety Report 7833391-X (Version None)
Quarter: 2011Q4

REPORT INFORMATION
  Report Type: 
  Country: None (occurrence: None)
  Receive Date: 20111024
  Receipt Date: 20111013
  Transmission Date: 20120403
  Serious: Yes (Hospitalization)
  Sender: FDA-Public Use
  Company Number: JP-BAYER-201010173BYL

PATIENT
  Age: 77 Year
  Sex: Male

DRUGS (13)
  1. NEXAVAR [Suspect]
     Dosage: 400 MG, BID
     Route: 048
     Dates: start: 20100105, end: 20100111
  2. GLYCYRON [AMINOACETIC ACID,DL-METHIONINE,GLYCYRRHIZIC ACID] [Concomitant]
     Indication: LIVER DISORDER
     Dosage: DAILY DOSE 3 DF
     Route: 048
     Dates: start: 20090101
  3. OMEPRAZOLE [Concomitant]
     Indication: HYPERTENSION
     Dosage: DAILY DOSE 20 MG
     Route: 048
     Dates: start: 20070101
  4. LASIX [Concomitant]
     Indication: ASCITES
     Dosage: DAILY DOSE 20 MG
     Route: 048
     Dates: start: 20091201
  5. DOGMATYL [Concomitant]
     Indication: INSOMNIA
     Dosage: DAILY DOSE 50 MG
     Route: 048
     Dates: start: 20080101
  6. AMINOLEBAN EN [Concomitant]
     Indication: LIVER DISORDER
     Dosage: DAILY DOSE 150 G
     Route: 048
     Dates: start: 20090101
  7. NEXAVAR [Suspect]
     Indication: HEPATIC NEOPLASM MALIGNANT
     Dosage: 400 MG, QD
     Route: 048
     Dates: start: 20090601
  8. NEXAVAR [Suspect]
     Dosage: 400 MG, QOD
     Route: 048
     Dates: start: 20110901
  9. SHAKUYAKUKANZOUTOU [Concomitant]
     Dosage: DAILY DOSE 7.5 G
     Route: 048
     Dates: start: 20091201
  10. POLARAMINE [Concomitant]
     Indication: PAIN
     Dosage: DAILY DOSE 4 MG
     Route: 048
     Dates: start: 20090101
  11. LOPERAMIDE HCL [Concomitant]
     Indication: DIARRHOEA
     Dosage: DAILY DOSE 2 MG
     Route: 048
     Dates: start: 20090101
  12. NEXAVAR [Suspect]
     Route: 048
     Dates: start: 20100112
  13. NEXAVAR [Suspect]
     Route: 048
     Dates: start: 20100510, end: 20100531

REACTIONS (8)
  - FLUSHING [None]
  - DEVICE DIFFICULT TO USE [None]
  - BRAIN STEM INFARCTION [None]
  - HEADACHE [None]
  - DIARRHOEA [None]
  - PALMAR-PLANTAR ERYTHRODYSAESTHESIA SYNDROME [None]
  - STOMATITIS [None]
  - HEPATIC NEOPLASM MALIGNANT [None]
